FAERS Safety Report 8188137-5 (Version None)
Quarter: 2012Q1

REPORT INFORMATION
  Report Type: 
  Country: None (occurrence: None)
  Receive Date: 20120306
  Receipt Date: 20120227
  Transmission Date: 20120608
  Serious: Yes (Other)
  Sender: FDA-Public Use
  Company Number: US-BAYER-2012-014643

PATIENT
  Sex: Female

DRUGS (2)
  1. MIRENA [Suspect]
     Dosage: 20 ?G/D, UNK
     Route: 015
     Dates: start: 20100601, end: 20100601
  2. MIRENA [Suspect]
     Dosage: 20 ?G/D, UNK
     Route: 015
     Dates: start: 20100901, end: 20101001

REACTIONS (5)
  - MEDICAL DEVICE DISCOMFORT [None]
  - ABDOMINAL PAIN [None]
  - DEVICE EXPULSION [None]
  - VAGINAL HAEMORRHAGE [None]
  - ABDOMINAL DISTENSION [None]
